FAERS Safety Report 9355612 (Version 1)
Quarter: 2013Q2

REPORT INFORMATION
  Report Type: Spontaneous
  Country: US (occurrence: None)
  Receive Date: 20130618
  Receipt Date: 20130618
  Transmission Date: 20140414
  Serious: Yes (Disabling)
  Sender: FDA-Public Use
  Company Number: None

PATIENT
  Age: 56 Year
  Sex: Female
  Weight: 85.28 kg

DRUGS (10)
  1. NUVIGIL [Suspect]
     Dosage: 1 PILL DAILY AM
     Route: 048
     Dates: start: 201201
  2. CITALOPRAM [Concomitant]
  3. ARMOUR THYROID [Concomitant]
  4. ASPIRIN [Concomitant]
  5. D3 [Concomitant]
  6. MAGNESIUM CHELATE [Concomitant]
  7. FISH OIL [Concomitant]
  8. PROTANDIM [Concomitant]
  9. T-150 [Concomitant]
  10. DIETARY SUPPLEMENT [Suspect]

REACTIONS (7)
  - Anger [None]
  - Agitation [None]
  - Rash [None]
  - Dry skin [None]
  - Skin exfoliation [None]
  - Ill-defined disorder [None]
  - Mass [None]
